FAERS Safety Report 12394963 (Version 5)
Quarter: 2019Q3

REPORT INFORMATION
  Report Type: Report from Study
  Country: US (occurrence: US)
  Receive Date: 20160523
  Receipt Date: 20190718
  Transmission Date: 20191004
  Serious: Yes (Other)
  Sender: FDA-Public Use
  Company Number: US-ARIAD-2015US004512

PATIENT
  Age: 76 Year
  Sex: Female
  Weight: 73 kg

DRUGS (8)
  1. MECLIZINE [Concomitant]
     Active Substance: MECLIZINE HYDROCHLORIDE
     Indication: PRODUCT USED FOR UNKNOWN INDICATION
     Dosage: 12.5 MG, TID
     Route: 065
  2. PONATINIB [Suspect]
     Active Substance: PONATINIB
     Indication: CHRONIC MYELOID LEUKAEMIA
     Dosage: 30 MILLIGRAM, QD
     Route: 048
     Dates: start: 201501
  3. ZOLPIDEM [Concomitant]
     Active Substance: ZOLPIDEM TARTRATE
     Indication: SLEEP DISORDER
     Dosage: 10 MG, PRN
     Route: 065
  4. PONATINIB [Suspect]
     Active Substance: PONATINIB
     Dosage: 30 MILLIGRAM, QD
     Route: 048
  5. PONATINIB [Suspect]
     Active Substance: PONATINIB
     Dosage: 30 MILLIGRAM, QD
     Route: 048
  6. ALLOPURINOL. [Concomitant]
     Active Substance: ALLOPURINOL
     Indication: PRODUCT USED FOR UNKNOWN INDICATION
     Dosage: UNK
     Route: 065
  7. PONATINIB [Suspect]
     Active Substance: PONATINIB
     Dosage: 15 MILLIGRAM, QD
     Route: 048
     Dates: start: 201501
  8. PONATINIB [Suspect]
     Active Substance: PONATINIB
     Dosage: 15 MILLIGRAM, QD
     Route: 048

REACTIONS (26)
  - Atrioventricular block second degree [Unknown]
  - Rash [Not Recovered/Not Resolved]
  - Abdominal pain upper [Not Recovered/Not Resolved]
  - Constipation [Recovering/Resolving]
  - QRS axis abnormal [Unknown]
  - Influenza [Not Recovered/Not Resolved]
  - Pulmonary mass [Unknown]
  - Ecchymosis [Not Recovered/Not Resolved]
  - Nausea [Recovered/Resolved]
  - Hypertension [Not Recovered/Not Resolved]
  - Visual impairment [Not Recovered/Not Resolved]
  - Alanine aminotransferase increased [Not Recovered/Not Resolved]
  - Chronic gastritis [Unknown]
  - Sinus bradycardia [Unknown]
  - Dry skin [Not Recovered/Not Resolved]
  - White blood cell count decreased [Recovered/Resolved]
  - Musculoskeletal pain [Not Recovered/Not Resolved]
  - Hyperkalaemia [Recovered/Resolved]
  - Bundle branch block right [Unknown]
  - Murphy^s sign positive [Not Recovered/Not Resolved]
  - Cyanosis [Not Recovered/Not Resolved]
  - Mammogram abnormal [Unknown]
  - Epigastric discomfort [Not Recovered/Not Resolved]
  - Musculoskeletal chest pain [Unknown]
  - Alopecia [Not Recovered/Not Resolved]
  - Decreased appetite [Recovered/Resolved]

NARRATIVE: CASE EVENT DATE: 201502
